FAERS Safety Report 7014432 (Version 5)
Quarter: 2014Q3

REPORT INFORMATION
  Report Type: Spontaneous
  Country: JP (occurrence: JP)
  Receive Date: 20090608
  Receipt Date: 20140716
  Transmission Date: 20150326
  Serious: Yes (Other)
  Sender: FDA-Public Use
  Company Number: PHHY2009JP21022

PATIENT
  Sex: Female

DRUGS (9)
  1. SANDOSTATIN LAR DEPOT [Suspect]
     Active Substance: OCTREOTIDE ACETATE
     Indication: VIPOMA
     Dosage: 40 MG, QMO
     Route: 030
     Dates: start: 20090122
  2. NOVAMIN [Concomitant]
     Active Substance: PROCHLORPERAZINE MALEATE
  3. SANDOSTATIN [Suspect]
     Active Substance: OCTREOTIDE ACETATE
     Dosage: 300 UG, DAILY
     Route: 058
     Dates: end: 2013
  4. LOPEMIN [Concomitant]
     Active Substance: LOPERAMIDE HYDROCHLORIDE
     Indication: DIARRHOEA
     Route: 048
  5. ASPARA K [Concomitant]
     Active Substance: POTASSIUM ASPARTATE
     Indication: HYPOKALAEMIA
     Route: 048
  6. SANDOSTATIN [Suspect]
     Active Substance: OCTREOTIDE ACETATE
     Indication: VIPOMA
     Dosage: 150 UG, UNK
     Route: 058
     Dates: start: 20090514
  7. LAC B [Concomitant]
     Active Substance: BIFIDOBACTERIUM SPP.
     Route: 048
  8. ABSORBINE JR [Concomitant]
     Active Substance: MENTHOL
     Indication: DIARRHOEA
     Route: 048
  9. SANDOSTATIN LAR DEPOT [Suspect]
     Active Substance: OCTREOTIDE ACETATE
     Dosage: 30 MG, QMO
     Route: 030
     Dates: start: 20090611

REACTIONS (9)
  - Feeling hot [Recovered/Resolved]
  - Malaise [Not Recovered/Not Resolved]
  - Erythema [Recovered/Resolved]
  - Hypokalaemia [Recovering/Resolving]
  - Decreased appetite [Unknown]
  - Diarrhoea [Recovering/Resolving]
  - Hypoaesthesia [Not Recovered/Not Resolved]
  - Abdominal pain [Unknown]
  - Drug ineffective [Unknown]

NARRATIVE: CASE EVENT DATE: 20090520
